FAERS Safety Report 14259803 (Version 2)
Quarter: 2017Q4

REPORT INFORMATION
  Report Type: Spontaneous
  Country: CH (occurrence: CH)
  Receive Date: 20171207
  Receipt Date: 20171219
  Transmission Date: 20180321
  Serious: Yes (Life-Threatening, Hospitalization, Disabling, Other)
  Sender: FDA-Public Use
  Company Number: CH-SA-BMS12754677

PATIENT
  Age: 64 Year
  Sex: Female
  Weight: 120 kg

DRUGS (7)
  1. IRBESARTAN. [Concomitant]
     Active Substance: IRBESARTAN
     Indication: ESSENTIAL HYPERTENSION
     Route: 065
     Dates: end: 200406
  2. CIPROXIN [Interacting]
     Active Substance: CIPROFLOXACIN
     Indication: URINARY TRACT INFECTION
     Route: 065
     Dates: start: 20040802, end: 20040803
  3. GLUCOPHAGE [Interacting]
     Active Substance: METFORMIN HYDROCHLORIDE
     Indication: TYPE 1 DIABETES MELLITUS
     Dosage: (FASTACTING/?INTERMEDIATE 30/70, 2 X 26 IU/D).
     Route: 048
     Dates: start: 200406, end: 20040803
  4. NORVASC [Concomitant]
     Active Substance: AMLODIPINE BESYLATE
     Indication: ESSENTIAL HYPERTENSION
     Route: 048
  5. SORTIS [Concomitant]
     Active Substance: ATORVASTATIN
     Indication: HYPERLIPIDAEMIA
     Route: 048
     Dates: start: 20040803
  6. COAPROVEL [Suspect]
     Active Substance: HYDROCHLOROTHIAZIDE\IRBESARTAN
     Indication: ESSENTIAL HYPERTENSION
     Dosage: DOSAGE FORM = 1 TABLET = 300MG/12.5MG
     Route: 048
     Dates: start: 200406
  7. ASPIRIN. [Concomitant]
     Active Substance: ASPIRIN
     Indication: CEREBROVASCULAR ACCIDENT
     Route: 048
     Dates: start: 20040529

REACTIONS (10)
  - Diarrhoea [Recovered/Resolved]
  - Tachypnoea [Recovered/Resolved]
  - Urinary tract infection [Unknown]
  - Drug interaction [Unknown]
  - Dyspnoea [Recovered/Resolved]
  - Dehydration [Recovered/Resolved]
  - Pneumonia aspiration [Recovered/Resolved]
  - Lactic acidosis [Recovered/Resolved]
  - Vomiting [Recovered/Resolved]
  - Acute kidney injury [Recovered/Resolved with Sequelae]

NARRATIVE: CASE EVENT DATE: 20040802
